FAERS Safety Report 14940116 (Version 2)
Quarter: 2018Q2

REPORT INFORMATION
  Report Type: Report from Study
  Country: None (occurrence: US)
  Receive Date: 20180525
  Receipt Date: 20180621
  Transmission Date: 20180711
  Serious: Yes (Hospitalization, Other)
  Sender: FDA-Public Use
  Company Number: US-ABBVIE-18P-163-2365729-00

PATIENT
  Sex: Female
  Weight: 48.12 kg

DRUGS (4)
  1. CREON [Suspect]
     Active Substance: PANCRELIPASE AMYLASE\PANCRELIPASE LIPASE\PANCRELIPASE PROTEASE
     Indication: PANCREATIC FAILURE
     Dosage: 2-4 CAPSULES WITH MEALS AND 2-3 CAPSULES WITH SNACKS
     Route: 048
     Dates: start: 201602
  2. SYMDEKO [Concomitant]
     Active Substance: IVACAFTOR\TEZACAFTOR
     Indication: CYSTIC FIBROSIS
     Dates: start: 201804
  3. CREON [Suspect]
     Active Substance: PANCRELIPASE AMYLASE\PANCRELIPASE LIPASE\PANCRELIPASE PROTEASE
     Indication: CYSTIC FIBROSIS
     Dosage: 2-4 CAPSULES WITH MEALS AND 2-3 CAPSULES WITH SNACKS
     Route: 048
  4. CREON [Suspect]
     Active Substance: PANCRELIPASE AMYLASE\PANCRELIPASE LIPASE\PANCRELIPASE PROTEASE
     Dosage: 2-4 CAPSULES WITH MEALS AND 2-3 CAPSULES WITH SNACKS
     Route: 048
     Dates: start: 2015

REACTIONS (13)
  - Depression [Unknown]
  - Staphylococcal infection [Unknown]
  - Weight decreased [Recovered/Resolved]
  - Mycobacterium abscessus infection [Recovered/Resolved]
  - Influenza [Recovered/Resolved]
  - Anxiety [Unknown]
  - Vitamin D deficiency [Unknown]
  - Dyspnoea [Recovered/Resolved]
  - Pneumonia [Unknown]
  - Fatigue [Recovered/Resolved]
  - Cystic fibrosis related diabetes [Not Recovered/Not Resolved]
  - Dehydration [Recovered/Resolved]
  - Lung infection [Unknown]

NARRATIVE: CASE EVENT DATE: 2007
